FAERS Safety Report 15106282 (Version 1)
Quarter: 2018Q3

REPORT INFORMATION
  Report Type: Other
  Country: FR (occurrence: FR)
  Receive Date: 20180704
  Receipt Date: 20180704
  Transmission Date: 20181010
  Serious: Yes (Hospitalization)
  Sender: FDA-Public Use
  Company Number: FR-DENTSPLY-2018SCDP000259

PATIENT

DRUGS (3)
  1. PULMICORT TURBUHALER [Suspect]
     Active Substance: BUDESONIDE
     Indication: INCISION SITE INFLAMMATION
     Dosage: RESPIRATORY (INHALATION)
     Dates: start: 20180528
  2. SOLUPRED                           /00016201/ [Suspect]
     Active Substance: PREDNISOLONE
     Indication: INFLAMMATION
     Dosage: 60 MG, QD
     Route: 048
     Dates: start: 20180528, end: 20180531
  3. XYLOCAINE WITH ADRENALINE (EPINEPHRINE) [Suspect]
     Active Substance: EPINEPHRINE BITARTRATE\LIDOCAINE HYDROCHLORIDE
     Indication: INCISION SITE PAIN
     Dosage: RESPIRATORY (INHALATION)
     Dates: start: 20180528, end: 20180531

REACTIONS (1)
  - Atrial fibrillation [Recovered/Resolved]

NARRATIVE: CASE EVENT DATE: 20180531
